FAERS Safety Report 25052307 (Version 3)
Quarter: 2025Q3

REPORT INFORMATION
  Report Type: Spontaneous
  Country: US (occurrence: US)
  Receive Date: 20250307
  Receipt Date: 20250808
  Transmission Date: 20251021
  Serious: No
  Sender: MERCK SHARP & DOHME LLC
  Company Number: US-009507513-2261019

PATIENT
  Sex: Female
  Weight: 99.8 kg

DRUGS (32)
  1. SOTATERCEPT [Suspect]
     Active Substance: SOTATERCEPT
     Indication: Product used for unknown indication
  2. SOTATERCEPT [Suspect]
     Active Substance: SOTATERCEPT
  3. SOTATERCEPT [Suspect]
     Active Substance: SOTATERCEPT
  4. SOTATERCEPT [Suspect]
     Active Substance: SOTATERCEPT
  5. REMODULIN [Suspect]
     Active Substance: TREPROSTINIL
     Indication: Pulmonary arterial hypertension
     Route: 058
     Dates: start: 20211230
  6. REMODULIN [Suspect]
     Active Substance: TREPROSTINIL
     Indication: Pulmonary arterial hypertension
     Route: 058
  7. WEGOVY [Suspect]
     Active Substance: SEMAGLUTIDE
     Indication: Product used for unknown indication
  8. CONTRAVE [Concomitant]
     Active Substance: BUPROPION HYDROCHLORIDE\NALTREXONE HYDROCHLORIDE
  9. ADEMPAS [Concomitant]
     Active Substance: RIOCIGUAT
  10. POTASSIUM CHLORIDE [Concomitant]
     Active Substance: POTASSIUM CHLORIDE
  11. PEPCID AC [Concomitant]
     Active Substance: FAMOTIDINE
  12. SINGULAIR [Concomitant]
     Active Substance: MONTELUKAST SODIUM
  13. LASIX [Concomitant]
     Active Substance: FUROSEMIDE
  14. Deep sea premium saline [Concomitant]
  15. LIDOCAINE AND PRILOCAINE [Concomitant]
     Active Substance: LIDOCAINE\PRILOCAINE
  16. PROTONIX [Concomitant]
     Active Substance: PANTOPRAZOLE SODIUM
  17. SERTRALINE HYDROCHLORIDE [Concomitant]
     Active Substance: SERTRALINE HYDROCHLORIDE
  18. DOXYCYCLINE HYCLATE [Concomitant]
     Active Substance: DOXYCYCLINE HYCLATE
  19. FLONASE ALLERGY RELIEF [Concomitant]
     Active Substance: FLUTICASONE PROPIONATE
  20. MELATONIN [Concomitant]
     Active Substance: MELATONIN
  21. DOK [Concomitant]
     Active Substance: DOCUSATE SODIUM
  22. OPSUMIT [Concomitant]
     Active Substance: MACITENTAN
  23. LIDOCAINE [Concomitant]
     Active Substance: LIDOCAINE
  24. TUMS [Concomitant]
     Active Substance: CALCIUM CARBONATE
  25. TRAZODONE HCL [Concomitant]
     Active Substance: TRAZODONE HYDROCHLORIDE
  26. DIGOXIN [Concomitant]
     Active Substance: DIGOXIN
  27. FEXOFENADINE HYDROCHLORIDE [Concomitant]
     Active Substance: FEXOFENADINE HYDROCHLORIDE
  28. QUESTRAN [Concomitant]
     Active Substance: CHOLESTYRAMINE
  29. ACETAMINOPHEN AND CODEINE [Concomitant]
     Active Substance: ACETAMINOPHEN\CODEINE PHOSPHATE
  30. MODERNA COVID-19 VACCINE [Concomitant]
     Active Substance: ELASOMERAN
  31. ONDANSETRON HYDROCHLORIDE [Concomitant]
     Active Substance: ONDANSETRON HYDROCHLORIDE
  32. TRIAMCINOLONE ACETONIDE [Concomitant]
     Active Substance: TRIAMCINOLONE ACETONIDE

REACTIONS (11)
  - Dyspnoea [Unknown]
  - Vomiting [Unknown]
  - Diarrhoea [Unknown]
  - Nausea [Unknown]
  - Headache [Unknown]
  - Myalgia [Not Recovered/Not Resolved]
  - Platelet count decreased [Unknown]
  - Dyspepsia [Unknown]
  - Feeling abnormal [Unknown]
  - Seasonal allergy [Unknown]
  - Increased appetite [Unknown]

NARRATIVE: CASE EVENT DATE: 20250101
